FAERS Safety Report 6582143-X (Version None)
Quarter: 2010Q1

REPORT INFORMATION
  Report Type: 
  Country: None (occurrence: None)
  Receive Date: 20100212
  Receipt Date: 20100212
  Transmission Date: 20100710
  Serious: Yes (Other)
  Sender: FDA-Public Use
  Company Number: None

PATIENT
  Sex: Female

DRUGS (1)
  1. LEVAQUIN [Suspect]
     Indication: BRONCHITIS
     Dosage: 1 TABLET ONCE A DAY ORAL
     Route: 048
     Dates: start: 20091231, end: 20100109

REACTIONS (2)
  - MYALGIA [None]
  - TENDON PAIN [None]
